FAERS Safety Report 14267891 (Version 1)
Quarter: 2017Q4

REPORT INFORMATION
  Report Type: Spontaneous
  Country: US (occurrence: US)
  Receive Date: 20171211
  Receipt Date: 20171211
  Transmission Date: 20180321
  Serious: Yes (Hospitalization)
  Sender: FDA-Public Use
  Company Number: None

PATIENT
  Sex: Female

DRUGS (8)
  1. ENBREL [Suspect]
     Active Substance: ETANERCEPT
     Indication: RHEUMATOID ARTHRITIS
     Dosage: ?          OTHER FREQUENCY:WEEKLY;?
     Route: 058
     Dates: start: 20170208
  2. CLARITIN [Concomitant]
     Active Substance: LORATADINE
  3. VALSARTAN. [Concomitant]
     Active Substance: VALSARTAN
  4. DIOVAN [Concomitant]
     Active Substance: VALSARTAN
  5. METHOTREXATE. [Concomitant]
     Active Substance: METHOTREXATE
  6. LOPRESSOR [Concomitant]
     Active Substance: METOPROLOL TARTRATE
  7. LISINOPRIL. [Concomitant]
     Active Substance: LISINOPRIL
  8. FOLIC ACID. [Concomitant]
     Active Substance: FOLIC ACID

REACTIONS (3)
  - Hypoaesthesia [None]
  - Paraesthesia [None]
  - Myocardial infarction [None]
